FAERS Safety Report 7355619-5 (Version None)
Quarter: 2011Q1

REPORT INFORMATION
  Report Type: 
  Country: None (occurrence: None)
  Receive Date: 20110316
  Receipt Date: 20110314
  Transmission Date: 20110831
  Serious: Yes (Death, Other)
  Sender: FDA-Public Use
  Company Number: US-PFIZER INC-2011056288

PATIENT
  Sex: Female
  Weight: 75 kg

DRUGS (1)
  1. CHANTIX [Suspect]
     Indication: SMOKING CESSATION THERAPY
     Dosage: UNK
     Route: 048

REACTIONS (11)
  - DEATH [None]
  - ANXIETY [None]
  - ABNORMAL BEHAVIOUR [None]
  - FLAT AFFECT [None]
  - SOCIAL AVOIDANT BEHAVIOUR [None]
  - NEOPLASM MALIGNANT [None]
  - CONFUSIONAL STATE [None]
  - DISORIENTATION [None]
  - RESTLESSNESS [None]
  - DEPRESSION [None]
  - FEAR [None]
